FAERS Safety Report 10057947 (Version 2)
Quarter: 2014Q2

REPORT INFORMATION
  Report Type: Spontaneous
  Country: NL (occurrence: None)
  Receive Date: 20140402
  Receipt Date: 20140605
  Transmission Date: 20141212
  Serious: Yes (Life-Threatening)
  Sender: FDA-Public Use
  Company Number: AUR-APL-2014-03864

PATIENT
  Age: 18 Year
  Sex: Male
  Weight: 79 kg

DRUGS (5)
  1. MIRTAZAPINE [Suspect]
     Indication: DEPRESSION
     Dates: start: 201312
  2. FLUOXETINE [Suspect]
     Indication: DEPRESSION
     Dates: start: 201403, end: 201403
  3. PAROXETINE [Suspect]
     Indication: DEPRESSION
     Dates: start: 201312
  4. LORAZEPAM [Suspect]
     Indication: DEPRESSION
     Dates: start: 201312
  5. SEROQUEL [Suspect]
     Indication: DEPRESSION
     Dates: start: 201312

REACTIONS (3)
  - Drug interaction [None]
  - Aggression [None]
  - Insomnia [None]
